FAERS Safety Report 4771060-3 (Version None)
Quarter: 2005Q3

REPORT INFORMATION
  Report Type: 
  Country: None (occurrence: None)
  Receive Date: 20050915
  Receipt Date: 20050801
  Transmission Date: 20060218
  Serious: Yes (Death, Life-Threatening)
  Sender: FDA-Public Use
  Company Number: SE-SANOFI-SYNTHELABO-F01200501374

PATIENT
  Sex: Male
  Weight: 97 kg

DRUGS (2)
  1. CLOPIDOGREL [Suspect]
     Indication: PERIPHERAL ISCHAEMIA
     Route: 048
     Dates: start: 20041105
  2. ASPIRIN [Concomitant]
     Indication: PERIPHERAL ISCHAEMIA
     Dosage: (75-100) MG
     Route: 048

REACTIONS (19)
  - BACK PAIN [None]
  - DIALYSIS [None]
  - GASTROINTESTINAL HAEMORRHAGE [None]
  - HAEMOGLOBIN DECREASED [None]
  - HAEMORRHAGE [None]
  - HEPATOCELLULAR DAMAGE [None]
  - MULTI-ORGAN DISORDER [None]
  - MULTI-ORGAN FAILURE [None]
  - MUSCLE HAEMORRHAGE [None]
  - MUSCLE NECROSIS [None]
  - NECROSIS [None]
  - RASH [None]
  - RENAL IMPAIRMENT [None]
  - SEPSIS [None]
  - SEPTIC SHOCK [None]
  - STREPTOCOCCAL SEPSIS [None]
  - SYSTEMIC INFLAMMATORY RESPONSE SYNDROME [None]
  - THROMBOTIC THROMBOCYTOPENIC PURPURA [None]
  - WOUND [None]
